FAERS Safety Report 8561488-8 (Version None)
Quarter: 2012Q3

REPORT INFORMATION
  Report Type: 
  Country: None (occurrence: None)
  Receive Date: 20120802
  Receipt Date: 20120719
  Transmission Date: 20120928
  Serious: Yes (Hospitalization, Disabling, Other)
  Sender: FDA-Public Use
  Company Number: US-PFIZER INC-001-0073-M0200107

PATIENT
  Sex: Female
  Weight: 56.7 kg

DRUGS (25)
  1. DILANTIN [Suspect]
     Dosage: UNK
     Route: 042
     Dates: start: 19970401, end: 19970426
  2. GABAPENTIN [Suspect]
     Indication: CONVULSION
     Dosage: 300 MG, 3X/DAY
     Route: 050
     Dates: start: 19970425, end: 19980101
  3. PANCURONIUM BROMIDE [Concomitant]
     Dosage: UNK
     Route: 042
     Dates: start: 19970410, end: 19970410
  4. FAMOTIDINE [Concomitant]
     Dosage: UNK
     Route: 042
     Dates: start: 19970410, end: 19970501
  5. HALOPERIDOL [Concomitant]
     Dosage: UNK
     Route: 042
     Dates: start: 19970410, end: 19970401
  6. AMLODIPINE BESYLATE [Concomitant]
     Dosage: UNK
     Route: 042
     Dates: start: 19970409, end: 19970401
  7. CEFOTAXIME SODIUM [Concomitant]
     Dosage: UNK
     Route: 042
     Dates: start: 19970413, end: 19970101
  8. DOPAMINE [Concomitant]
     Dosage: UNK
     Route: 042
     Dates: start: 19970417, end: 19970401
  9. MANNITOL [Concomitant]
     Dosage: UNK
     Route: 042
     Dates: start: 19970409, end: 19970501
  10. DEXAMETHASONE ACETATE [Concomitant]
     Dosage: UNK
     Route: 042
     Dates: start: 19970409, end: 19970501
  11. POTASSIUM CHLORIDE [Concomitant]
     Dosage: UNK
     Route: 042
     Dates: start: 19970409, end: 19970101
  12. (D5 1/2 NS WITH 20 MEQ KCL) [Concomitant]
     Dosage: UNK
     Route: 042
     Dates: start: 19970409, end: 19970424
  13. PENTOBARBITAL [Concomitant]
     Dosage: UNK
     Route: 042
     Dates: start: 19970401, end: 19970401
  14. NITROPRUSSIDE SODIUM [Concomitant]
     Dosage: UNK
     Route: 042
     Dates: start: 19970410, end: 19970422
  15. NYSTATIN [Concomitant]
     Dosage: UNK
     Dates: start: 19970401, end: 19970401
  16. NEURONTIN [Suspect]
     Indication: CONVULSION
     Dosage: 300 MG, 3X/DAY
     Dates: start: 19970425
  17. FLUCONAZOLE [Suspect]
     Indication: FUNGAL INFECTION
  18. VANCOMYCIN [Concomitant]
     Dosage: UNK
     Route: 042
     Dates: start: 19970413, end: 19970101
  19. PSEUDOEPHEDRINE HYDROCHLORIDE [Concomitant]
     Dosage: UNK
     Route: 048
     Dates: start: 19970101, end: 19970101
  20. METOCLOPRAMIDE [Concomitant]
     Dosage: UNK
     Route: 042
     Dates: start: 19970401, end: 19970401
  21. DILANTIN [Suspect]
     Indication: CONVULSION
     Dosage: 1GM FOLLOWED BY 300MG
     Route: 042
     Dates: start: 19970409
  22. FLUCONAZOLE [Suspect]
     Indication: RESPIRATORY TRACT INFECTION
     Dosage: 400 MG DAILY
     Route: 042
     Dates: start: 19970422, end: 19970430
  23. NIMODIPINE [Concomitant]
     Dosage: UNK
     Route: 042
     Dates: start: 19970410, end: 19970413
  24. ATROPINE [Concomitant]
     Dosage: UNK
     Route: 042
     Dates: start: 19970409
  25. FRESH FROZEN PLASMA [Concomitant]
     Dosage: UNK
     Dates: start: 19970401, end: 19970101

REACTIONS (58)
  - TRACHEOBRONCHITIS [None]
  - VULVOVAGINAL MYCOTIC INFECTION [None]
  - WEIGHT INCREASED [None]
  - BLADDER DISORDER [None]
  - LETHARGY [None]
  - URINARY TRACT DISORDER [None]
  - RUPTURED CEREBRAL ANEURYSM [None]
  - BLOOD CHOLESTEROL INCREASED [None]
  - LIVER FUNCTION TEST ABNORMAL [None]
  - RESPIRATORY TRACT INFECTION [None]
  - AMNESIA [None]
  - BLOOD TRIGLYCERIDES INCREASED [None]
  - OLIGOMENORRHOEA [None]
  - PHARYNGITIS [None]
  - BLOOD LACTATE DEHYDROGENASE INCREASED [None]
  - HYPERGLYCAEMIA [None]
  - DEPRESSION [None]
  - UNEVALUABLE EVENT [None]
  - CONSTIPATION [None]
  - DIZZINESS [None]
  - VISUAL FIELD DEFECT [None]
  - INSOMNIA [None]
  - ANTICONVULSANT DRUG LEVEL INCREASED [None]
  - ANGER [None]
  - HYPERSENSITIVITY [None]
  - OESOPHAGITIS [None]
  - RASH PRURITIC [None]
  - ARTHROPATHY [None]
  - FALL [None]
  - SEBORRHOEIC DERMATITIS [None]
  - OBSESSIVE-COMPULSIVE DISORDER [None]
  - ANTICONVULSANT DRUG LEVEL DECREASED [None]
  - ANAEMIA [None]
  - PNEUMONIA KLEBSIELLA [None]
  - BLINDNESS UNILATERAL [None]
  - URINARY TRACT INFECTION [None]
  - ABDOMINAL DISTENSION [None]
  - OPTIC ISCHAEMIC NEUROPATHY [None]
  - CRANIOTOMY [None]
  - FATIGUE [None]
  - STAPHYLOCOCCAL BACTERAEMIA [None]
  - ELECTROCARDIOGRAM T WAVE ABNORMAL [None]
  - POLLAKIURIA [None]
  - MEMORY IMPAIRMENT [None]
  - INTRACRANIAL PRESSURE INCREASED [None]
  - COAGULOPATHY [None]
  - GRANULOMA [None]
  - DIARRHOEA [None]
  - PAIN [None]
  - INTRACRANIAL ANEURYSM [None]
  - PYREXIA [None]
  - DEVICE RELATED INFECTION [None]
  - RESPIRATORY FAILURE [None]
  - GASTRIC HYPOMOTILITY [None]
  - PSYCHOTIC DISORDER [None]
  - HYPOTHYROIDISM [None]
  - ANKLE FRACTURE [None]
  - AGITATION [None]
